FAERS Safety Report 8364874-4 (Version None)
Quarter: 2012Q1

REPORT INFORMATION
  Report Type: 
  Country: None (occurrence: None)
  Receive Date: 20120323
  Receipt Date: 20111112
  Transmission Date: 20120608
  Serious: Yes (Hospitalization)
  Sender: FDA-Public Use
  Company Number: 163-21880-11111898

PATIENT
  Age: 65 Year
  Sex: Female

DRUGS (3)
  1. REVLIMID [Suspect]
     Indication: MULTIPLE MYELOMA
     Dosage: 5 MG, X28, PO 5 MG, X 21 DAYS, PO
     Route: 048
     Dates: start: 20090801
  2. REVLIMID [Suspect]
     Indication: MULTIPLE MYELOMA
     Dosage: 5 MG, X28, PO 5 MG, X 21 DAYS, PO
     Route: 048
     Dates: start: 20110901, end: 20111101
  3. REVLIMID [Suspect]
     Indication: MULTIPLE MYELOMA
     Dosage: 5 MG, X28, PO 5 MG, X 21 DAYS, PO
     Route: 048
     Dates: start: 20110201

REACTIONS (1)
  - RED BLOOD CELL COUNT DECREASED [None]
